FAERS Safety Report 20958335 (Version 1)
Quarter: 2022Q2

REPORT INFORMATION
  Report Type: Spontaneous
  Country: US (occurrence: US)
  Receive Date: 20220614
  Receipt Date: 20220614
  Transmission Date: 20220720
  Serious: Yes (Hospitalization, Other)
  Sender: FDA-Public Use
  Company Number: US-TRIS PHARMA, INC.-22US010271

PATIENT

DRUGS (31)
  1. GABAPENTIN [Suspect]
     Active Substance: GABAPENTIN
     Indication: Neuralgia
     Dosage: 900 MILLIGRAM, QD
  2. GABAPENTIN [Suspect]
     Active Substance: GABAPENTIN
     Indication: Delirium
     Dosage: 900 MILLIGRAM, TID
  3. GABAPENTIN [Suspect]
     Active Substance: GABAPENTIN
     Dosage: 900 MILLIGRAM, BID
  4. GABAPENTIN [Suspect]
     Active Substance: GABAPENTIN
     Dosage: 900 MILLIGRAM, TID
  5. GABAPENTIN [Suspect]
     Active Substance: GABAPENTIN
     Dosage: 900 MILLIGRAM, BID
  6. GABAPENTIN [Suspect]
     Active Substance: GABAPENTIN
     Dosage: 900 MILLIGRAM, TID
  7. GABAPENTIN [Suspect]
     Active Substance: GABAPENTIN
     Dosage: 900 MILLIGRAM, BID
  8. GABAPENTIN [Suspect]
     Active Substance: GABAPENTIN
     Dosage: 600MG; 900MG
  9. GABAPENTIN [Suspect]
     Active Substance: GABAPENTIN
     Dosage: 600 MILLIGRAM, TID
  10. GABAPENTIN [Suspect]
     Active Substance: GABAPENTIN
     Dosage: 300MG BID, 600MG BID
  11. GABAPENTIN [Suspect]
     Active Substance: GABAPENTIN
     Dosage: 300 MILLIGRAM, BID
  12. GABAPENTIN [Suspect]
     Active Substance: GABAPENTIN
     Dosage: UNK
  13. BENZODIAZEPINE [Suspect]
     Active Substance: BENZODIAZEPINE
     Indication: Delirium
  14. DEXMEDETOMIDINE [Suspect]
     Active Substance: DEXMEDETOMIDINE
     Indication: Delirium
     Dosage: 0.4-2 MCG/KG/HR
     Route: 042
  15. KETAMINE [Suspect]
     Active Substance: KETAMINE
     Indication: Delirium
     Dosage: DECREASED
     Route: 042
  16. KETAMINE [Suspect]
     Active Substance: KETAMINE
     Dosage: UNK
     Route: 042
  17. QUETIAPINE [Suspect]
     Active Substance: QUETIAPINE
     Indication: Delirium
     Dosage: 75 MILLIGRAM, TID
  18. QUETIAPINE [Suspect]
     Active Substance: QUETIAPINE
     Dosage: 200 MILLIGRAM, Q 6 HR
  19. QUETIAPINE [Suspect]
     Active Substance: QUETIAPINE
     Dosage: 100 MILLIGRAM, TID
  20. QUETIAPINE [Suspect]
     Active Substance: QUETIAPINE
     Dosage: UNK
  21. VALPROATE [Suspect]
     Active Substance: VALPROIC ACID
     Indication: Delirium
     Dosage: 750 MILLIGRAM, Q 8 HR
     Route: 042
  22. VALPROATE [Suspect]
     Active Substance: VALPROIC ACID
     Dosage: MAINTENANCE DOSE
     Route: 042
  23. VALPROATE [Suspect]
     Active Substance: VALPROIC ACID
     Dosage: 20 MILLIGRAM PER KILOGRAM LOADING DOSE
     Route: 042
  24. HALOPERIDOL [Suspect]
     Active Substance: HALOPERIDOL
     Indication: Delirium
     Dosage: UNK
  25. MIDAZOLAM [Suspect]
     Active Substance: MIDAZOLAM
     Indication: Delirium
     Dosage: UNK
  26. LORAZEPAM [Suspect]
     Active Substance: LORAZEPAM
     Indication: Delirium
     Dosage: UNK
  27. ARIPIPRAZOLE [Suspect]
     Active Substance: ARIPIPRAZOLE
     Indication: Delirium
     Dosage: DOSE DECREASED
  28. ARIPIPRAZOLE [Suspect]
     Active Substance: ARIPIPRAZOLE
     Dosage: 10 MILLIGRAM, QD
  29. ZIPRASIDONE [Suspect]
     Active Substance: ZIPRASIDONE
     Indication: Delirium
     Dosage: 10 MILLIGRAM, BID
  30. ALPRAZOLAM [Suspect]
     Active Substance: ALPRAZOLAM
     Indication: Delirium
     Dosage: 1 MILLIGRAM, BID
  31. ALPRAZOLAM [Suspect]
     Active Substance: ALPRAZOLAM
     Dosage: 0.5 MILLIGRAM, BID

REACTIONS (12)
  - Delirium [Recovered/Resolved]
  - Cerebrovascular accident [Recovered/Resolved]
  - Carotid artery occlusion [Recovered/Resolved]
  - Cerebral artery stenosis [Recovered/Resolved]
  - Sedation complication [Recovered/Resolved]
  - Unresponsive to stimuli [Recovered/Resolved]
  - Malnutrition [Unknown]
  - Hyperammonaemia [Unknown]
  - Hypertransaminasaemia [Unknown]
  - Aphasia [Recovered/Resolved]
  - Drug ineffective for unapproved indication [Recovered/Resolved]
  - Off label use [Unknown]
